FAERS Safety Report 14412931 (Version 1)
Quarter: 2018Q1

REPORT INFORMATION
  Report Type: Spontaneous
  Country: DK (occurrence: DK)
  Receive Date: 20180119
  Receipt Date: 20180119
  Transmission Date: 20180509
  Serious: Yes (Hospitalization)
  Sender: FDA-Public Use
  Company Number: DK-SA-2018SA009733

PATIENT
  Age: 27 Year
  Sex: Female
  Weight: 42 kg

DRUGS (1)
  1. LEMTRADA [Suspect]
     Active Substance: ALEMTUZUMAB
     Indication: MULTIPLE SCLEROSIS
     Route: 041
     Dates: start: 20160517, end: 20160523

REACTIONS (6)
  - Coagulation factor XIII level decreased [Recovered/Resolved]
  - Activated partial thromboplastin time prolonged [Recovered/Resolved]
  - Abdominal pain upper [Recovered/Resolved]
  - Haemorrhagic diathesis [Recovered/Resolved]
  - Ecchymosis [Recovered/Resolved]
  - Coagulation factor deficiency [Recovered/Resolved]

NARRATIVE: CASE EVENT DATE: 201705
